FAERS Safety Report 7764335-7 (Version None)
Quarter: 2011Q3

REPORT INFORMATION
  Report Type: 
  Country: None (occurrence: None)
  Receive Date: 20110921
  Receipt Date: 20110913
  Transmission Date: 20111222
  Serious: Yes (Death, Other)
  Sender: FDA-Public Use
  Company Number: DK-NAPPMUNDI-USA-2011-0074541

PATIENT
  Age: 33 Year
  Sex: Male

DRUGS (4)
  1. METHADONE HCL [Suspect]
     Indication: PRODUCT USED FOR UNKNOWN INDICATION
  2. OXYCONTIN [Suspect]
     Indication: ROAD TRAFFIC ACCIDENT
  3. NORTRIPTYLINE HCL [Suspect]
     Indication: PRODUCT USED FOR UNKNOWN INDICATION
  4. OXYCONTIN [Suspect]
     Indication: PAIN

REACTIONS (3)
  - TOXICITY TO VARIOUS AGENTS [None]
  - MULTIPLE DRUG OVERDOSE [None]
  - DRUG ABUSER [None]
